FAERS Safety Report 5606882-X (Version None)
Quarter: 2008Q1

REPORT INFORMATION
  Report Type: 
  Country: None (occurrence: None)
  Receive Date: 20080125
  Receipt Date: 20080116
  Transmission Date: 20080703
  Serious: Yes (Other)
  Sender: FDA-Public Use
  Company Number: 18249

PATIENT
  Age: 44 Year
  Sex: Female

DRUGS (3)
  1. CARBOPLATIN [Suspect]
     Indication: OVARIAN CANCER
     Dosage: 792 MG FREQ IV
     Route: 042
  2. PACLITAXEL [Suspect]
     Indication: OVARIAN CANCER
     Dosage: 292 MG FREQ IV
     Route: 042
  3. DEXAMETHASONE TAB [Concomitant]

REACTIONS (5)
  - DRUG TOXICITY [None]
  - DYSURIA [None]
  - HYDRONEPHROSIS [None]
  - RENAL FAILURE ACUTE [None]
  - RENAL HAEMORRHAGE [None]
